FAERS Safety Report 14328013 (Version 1)
Quarter: 2017Q4

REPORT INFORMATION
  Report Type: Spontaneous
  Country: US (occurrence: US)
  Receive Date: 20171226
  Receipt Date: 20171226
  Transmission Date: 20180321
  Serious: Yes (Hospitalization)
  Sender: FDA-Public Use
  Company Number: None

PATIENT
  Sex: Female

DRUGS (3)
  1. TEMOZOLOMIDE. [Suspect]
     Active Substance: TEMOZOLOMIDE
     Indication: NEOPLASM MALIGNANT
  2. MATULANE [Concomitant]
     Active Substance: PROCARBAZINE HYDROCHLORIDE
  3. GLEOSTINE [Concomitant]
     Active Substance: LOMUSTINE

REACTIONS (2)
  - Hospitalisation [None]
  - Manufacturing product shipping issue [None]

NARRATIVE: CASE EVENT DATE: 2017
